FAERS Safety Report 8996082 (Version 1)
Quarter: 2013Q1

REPORT INFORMATION
  Report Type: Spontaneous
  Country: US (occurrence: US)
  Receive Date: 20130103
  Receipt Date: 20130103
  Transmission Date: 20140127
  Serious: No
  Sender: FDA-Public Use
  Company Number: US-ABBOTT-12P-163-0930160-00

PATIENT
  Age: 26 Year
  Sex: Female
  Weight: 63.56 kg

DRUGS (2)
  1. SYNTHROID [Suspect]
     Indication: HYPOTHYROIDISM
     Dates: start: 1999, end: 201202
  2. SYNTHROID [Suspect]
     Indication: HYPOTHYROIDISM
     Dates: start: 201202

REACTIONS (4)
  - Pain of skin [Not Recovered/Not Resolved]
  - Skin warm [Not Recovered/Not Resolved]
  - Urticaria [Not Recovered/Not Resolved]
  - Rash generalised [Not Recovered/Not Resolved]
